FAERS Safety Report 5705635-1 (Version None)
Quarter: 2008Q2

REPORT INFORMATION
  Report Type: 
  Country: None (occurrence: None)
  Receive Date: 20080415
  Receipt Date: 20080331
  Transmission Date: 20081010
  Serious: Yes (Other)
  Sender: FDA-Public Use
  Company Number: CA-GENENTECH-258608

PATIENT
  Sex: Male
  Weight: 83.991 kg

DRUGS (1)
  1. OMALIZUMAB [Suspect]
     Indication: ASTHMA
     Dosage: 300 MG, Q4W
     Route: 058
     Dates: start: 20080318

REACTIONS (4)
  - DYSGEUSIA [None]
  - DYSPNOEA [None]
  - PALPITATIONS [None]
  - PHARYNGEAL OEDEMA [None]
